FAERS Safety Report 4408819-8 (Version None)
Quarter: 2004Q3

REPORT INFORMATION
  Report Type: 
  Country: None (occurrence: None)
  Receive Date: 20040727
  Receipt Date: 20040622
  Transmission Date: 20050211
  Serious: Yes (Hospitalization)
  Sender: FDA-Public Use
  Company Number: JP-ROCHE-371777

PATIENT
  Age: 68 Year
  Sex: Female
  Weight: 52 kg

DRUGS (4)
  1. XELODA [Suspect]
     Indication: OESOPHAGEAL CARCINOMA
     Route: 048
     Dates: start: 20040609, end: 20040629
  2. XELODA [Suspect]
     Route: 048
     Dates: start: 20020928, end: 20030725
  3. XELODA [Suspect]
     Route: 048
     Dates: start: 20030726, end: 20040203
  4. XELODA [Suspect]
     Route: 048
     Dates: start: 20030204, end: 20040608

REACTIONS (1)
  - SICK SINUS SYNDROME [None]
